FAERS Safety Report 9934895 (Version 3)
Quarter: 2014Q2

REPORT INFORMATION
  Report Type: Spontaneous
  Country: US (occurrence: US)
  Receive Date: 20140228
  Receipt Date: 20140429
  Transmission Date: 20141212
  Serious: Yes (Other)
  Sender: FDA-Public Use
  Company Number: US-TEVA-465431USA

PATIENT
  Sex: Female

DRUGS (6)
  1. LEVOFLOXACIN TABLETS, 250 MG, 500 MG AND 750 MG [Suspect]
     Indication: SINUSITIS
     Dosage: 500 MILLIGRAM DAILY;
     Route: 048
     Dates: start: 20140217, end: 20140222
  2. VENLAFAXINE HYDROCHLORIDE [Concomitant]
     Indication: DEPRESSION
     Dates: start: 20140208, end: 20140215
  3. VENLAFAXINE HYDROCHLORIDE [Concomitant]
     Indication: ANXIETY
  4. OMEPRAZOLE [Concomitant]
     Indication: HIATUS HERNIA
  5. LORAZEPAM [Concomitant]
     Indication: ANXIETY
  6. ZANTAC [Concomitant]

REACTIONS (80)
  - Melaena [Unknown]
  - Faeces discoloured [Unknown]
  - Drug withdrawal syndrome [Unknown]
  - Hypersensitivity [Unknown]
  - Adverse reaction [Unknown]
  - Nausea [Unknown]
  - Asthenia [Not Recovered/Not Resolved]
  - Headache [Not Recovered/Not Resolved]
  - Lethargy [Unknown]
  - Dizziness [Unknown]
  - Somnolence [Unknown]
  - Gastrooesophageal reflux disease [Unknown]
  - Swollen tongue [Not Recovered/Not Resolved]
  - Glossodynia [Not Recovered/Not Resolved]
  - Tendonitis [Unknown]
  - Carpal tunnel syndrome [Unknown]
  - Pain in extremity [Unknown]
  - Arthralgia [Unknown]
  - Oedema peripheral [Unknown]
  - Joint swelling [Unknown]
  - Tendon discomfort [Unknown]
  - Tendonitis [Unknown]
  - Tendonitis [Unknown]
  - Pollakiuria [Unknown]
  - Diarrhoea [Unknown]
  - Chest discomfort [Unknown]
  - Heart rate increased [Unknown]
  - Feeling abnormal [Unknown]
  - Anxiety [Unknown]
  - Confusional state [Not Recovered/Not Resolved]
  - Dysphonia [Unknown]
  - Throat tightness [Unknown]
  - Acne [Unknown]
  - Erythema [Unknown]
  - Abdominal pain upper [Unknown]
  - Pruritus [Unknown]
  - Decreased appetite [Unknown]
  - Nervousness [Unknown]
  - Hearing impaired [Unknown]
  - Restlessness [Unknown]
  - Depression [Unknown]
  - Insomnia [Unknown]
  - Nightmare [Unknown]
  - Paranoia [Unknown]
  - Paraesthesia [Unknown]
  - Burning sensation [Unknown]
  - Hypoaesthesia [Unknown]
  - Constipation [Unknown]
  - Dry mouth [Unknown]
  - Irritability [Unknown]
  - Coordination abnormal [Unknown]
  - Dyspepsia [Unknown]
  - Oesophageal pain [Not Recovered/Not Resolved]
  - Mood altered [Unknown]
  - Dysarthria [Unknown]
  - Gait disturbance [Unknown]
  - Hyporeflexia [Unknown]
  - Clumsiness [Unknown]
  - Panic reaction [Unknown]
  - Anger [Unknown]
  - Inappropriate affect [Unknown]
  - Logorrhoea [Unknown]
  - Cough [Unknown]
  - Aphthous stomatitis [Unknown]
  - Blister [Unknown]
  - Muscle spasms [Unknown]
  - Candida infection [Not Recovered/Not Resolved]
  - Drug administration error [Unknown]
  - Muscular weakness [Unknown]
  - Dysphagia [Unknown]
  - Rash [Unknown]
  - Hallucination [Unknown]
  - Anxiety [Unknown]
  - Dizziness [Unknown]
  - Hearing impaired [Unknown]
  - Arthralgia [Unknown]
  - Chest pain [Unknown]
  - Dehydration [Unknown]
  - Gastrooesophageal reflux disease [Unknown]
  - Gastritis [Unknown]
